FAERS Safety Report 14266771 (Version 2)
Quarter: 2019Q1

REPORT INFORMATION
  Report Type: Spontaneous
  Country: CH (occurrence: CH)
  Receive Date: 20171211
  Receipt Date: 20190225
  Transmission Date: 20190417
  Serious: Yes (Other)
  Sender: FDA-Public Use
  Company Number: CH-SUN PHARMACEUTICAL INDUSTRIES LTD-2017R1-156160

PATIENT
  Age: 75 Year
  Sex: Female

DRUGS (6)
  1. PREDNISONE. [Suspect]
     Active Substance: PREDNISONE
     Indication: NECROTISING SCLERITIS
  2. RITUXIMAB. [Suspect]
     Active Substance: RITUXIMAB
     Indication: ULCERATIVE KERATITIS
     Dosage: 1 CYCLE OF 2 INJECTIONS OF 1000 MG RITUXIMAB AT 2-WEEK INTERVAL
     Route: 065
  3. METHOTREXATE. [Suspect]
     Active Substance: METHOTREXATE
     Indication: NECROTISING SCLERITIS
  4. METHOTREXATE. [Suspect]
     Active Substance: METHOTREXATE
     Indication: ULCERATIVE KERATITIS
     Route: 065
  5. RITUXIMAB. [Suspect]
     Active Substance: RITUXIMAB
     Indication: NECROTISING SCLERITIS
  6. PREDNISONE. [Suspect]
     Active Substance: PREDNISONE
     Indication: ULCERATIVE KERATITIS
     Dosage: 80 MG, DAILY
     Route: 065

REACTIONS (1)
  - Pneumonia [Unknown]
